FAERS Safety Report 19036964 (Version 3)
Quarter: 2022Q4

REPORT INFORMATION
  Report Type: Report from Study
  Country: US (occurrence: US)
  Receive Date: 20210322
  Receipt Date: 20221117
  Transmission Date: 20230113
  Serious: Yes (Death, Other)
  Sender: FDA-Public Use
  Company Number: US-ACADIA PHARMACEUTICALS INC.-ACA-2021-PIM-000821

PATIENT
  Age: 87 Year
  Sex: Male

DRUGS (14)
  1. NUPLAZID [Suspect]
     Active Substance: PIMAVANSERIN TARTRATE
     Indication: Parkinson^s disease
     Dosage: 34 MILLIGRAM, QD
     Route: 048
     Dates: start: 20201223
  2. NUPLAZID [Suspect]
     Active Substance: PIMAVANSERIN TARTRATE
     Dosage: 34 MILLIGRAM, QD
     Route: 048
     Dates: start: 20220929
  3. NEUPRO [Concomitant]
     Active Substance: ROTIGOTINE
  4. CEPHALEXIN [Concomitant]
     Active Substance: CEPHALEXIN
  5. BICALUTAMIDE [Concomitant]
     Active Substance: BICALUTAMIDE
  6. LUCENTIS [Concomitant]
     Active Substance: RANIBIZUMAB
  7. ASPIRIN [Concomitant]
     Active Substance: ASPIRIN
  8. COENZYME Q10 [Concomitant]
     Active Substance: DIETARY SUPPLEMENT\UBIDECARENONE
  9. MIRALAX [Concomitant]
     Active Substance: POLYETHYLENE GLYCOL 3350
  10. SYNTHROID [Concomitant]
     Active Substance: LEVOTHYROXINE SODIUM
  11. RYTARY [Concomitant]
     Active Substance: CARBIDOPA\LEVODOPA
  12. HYDROXYUREA [Concomitant]
     Active Substance: HYDROXYUREA
  13. LUPRON DEPOT [Concomitant]
     Active Substance: LEUPROLIDE ACETATE
  14. GOCOVRI [Concomitant]
     Active Substance: AMANTADINE

REACTIONS (3)
  - Death [Fatal]
  - Hallucination [Unknown]
  - Hallucination [Not Recovered/Not Resolved]

NARRATIVE: CASE EVENT DATE: 20221108
